FAERS Safety Report 5195138-8 (Version None)
Quarter: 2006Q4

REPORT INFORMATION
  Report Type: 
  Country: None (occurrence: None)
  Receive Date: 20061229
  Receipt Date: 20060203
  Transmission Date: 20070319
  Serious: Yes (Life-Threatening, Hospitalization, Disabling, Other)
  Sender: FDA-Public Use
  Company Number: GB-PFIZER INC-2006018232

PATIENT
  Sex: Female
  Weight: 51 kg

DRUGS (10)
  1. LIPITOR [Suspect]
     Indication: HYPERCHOLESTEROLAEMIA
     Route: 048
     Dates: start: 20040619, end: 20060120
  2. LIPITOR [Interacting]
     Indication: MYOCARDIAL INFARCTION
  3. CLARITHROMYCIN [Interacting]
     Indication: DRUG USE FOR UNKNOWN INDICATION
     Dosage: TEXT:UNKNOWN-FREQ:UNKNOWN
     Route: 065
  4. LANSOPRAZOLE [Concomitant]
     Route: 048
  5. NICORANDIL [Concomitant]
     Route: 048
     Dates: start: 20040701, end: 20060123
  6. RAMIPRIL [Concomitant]
     Route: 048
     Dates: start: 20040701, end: 20060122
  7. ASPIRIN [Concomitant]
     Route: 048
  8. BISOPROLOL FUMARATE [Concomitant]
     Route: 048
  9. PLAVIX [Concomitant]
     Route: 048
     Dates: start: 20041106, end: 20060122
  10. PENICILLIN V [Concomitant]
     Route: 065

REACTIONS (8)
  - DRUG INTERACTION [None]
  - INFLUENZA LIKE ILLNESS [None]
  - LIVER FUNCTION TEST ABNORMAL [None]
  - LOWER RESPIRATORY TRACT INFECTION [None]
  - MYOCARDIAL INFARCTION [None]
  - RENAL FAILURE ACUTE [None]
  - RHABDOMYOLYSIS [None]
  - VENTRICULAR DYSFUNCTION [None]
